FAERS Safety Report 6322782-4 (Version None)
Quarter: 2009Q3

REPORT INFORMATION
  Report Type: 
  Country: None (occurrence: None)
  Receive Date: 20090824
  Receipt Date: 20090302
  Transmission Date: 20100115
  Serious: No
  Sender: FDA-Public Use
  Company Number: US-ABBOTT-09P-163-0560484-00

PATIENT
  Sex: Male
  Weight: 93.07 kg

DRUGS (2)
  1. NIASPAN [Suspect]
     Indication: BLOOD CHOLESTEROL INCREASED
     Dates: start: 20090101, end: 20090307
  2. SYNTHROID [Concomitant]
     Indication: THYROID DISORDER
     Dates: start: 19380101

REACTIONS (1)
  - BLOOD CHOLESTEROL INCREASED [None]
